FAERS Safety Report 8356476-0 (Version None)
Quarter: 2012Q2

REPORT INFORMATION
  Report Type: 
  Country: None (occurrence: None)
  Receive Date: 20120514
  Receipt Date: 20120507
  Transmission Date: 20120825
  Serious: Yes (Hospitalization)
  Sender: FDA-Public Use
  Company Number: ES-UCBSA-056927

PATIENT
  Age: 76 Year
  Sex: Male

DRUGS (4)
  1. KEPPRA [Suspect]
     Indication: EPILEPSY
     Route: 048
     Dates: start: 20100701, end: 20100924
  2. FLUOXETINE HCL [Concomitant]
     Route: 048
  3. TRILEPTAL [Suspect]
     Indication: EPILEPSY
     Route: 048
     Dates: start: 20100701, end: 20100924
  4. RISPERDAL [Concomitant]
     Route: 048

REACTIONS (5)
  - DYSPHAGIA [None]
  - ASPIRATION BRONCHIAL [None]
  - GAIT DISTURBANCE [None]
  - GENERAL PHYSICAL HEALTH DETERIORATION [None]
  - SOMNOLENCE [None]
